FAERS Safety Report 15211255 (Version 1)
Quarter: 2018Q3

REPORT INFORMATION
  Report Type: Spontaneous
  Country: US (occurrence: US)
  Receive Date: 20180701
  Receipt Date: 20180701
  Transmission Date: 20181010
  Serious: No
  Sender: FDA-Public Use
  Company Number: None

PATIENT
  Age: 55 Year
  Sex: Male
  Weight: 94.35 kg

DRUGS (13)
  1. CIALIS [Concomitant]
     Active Substance: TADALAFIL
  2. TRULICITY [Suspect]
     Active Substance: DULAGLUTIDE
  3. XIGDUO XR [Concomitant]
     Active Substance: DAPAGLIFLOZIN PROPANEDIOL\METFORMIN HYDROCHLORIDE
  4. WHOLE FOOD MULTI VITAMIN [Concomitant]
  5. COQ10 [Concomitant]
     Active Substance: UBIDECARENONE
  6. TRESIBA [Concomitant]
     Active Substance: INSULIN DEGLUDEC
  7. ASPIRIN. [Concomitant]
     Active Substance: ASPIRIN
  8. ALPHA LIPOIC ACID [Concomitant]
     Active Substance: .ALPHA.-LIPOIC ACID
  9. VICTOZA [Concomitant]
     Active Substance: LIRAGLUTIDE
  10. FISH OIL [Concomitant]
     Active Substance: FISH OIL
  11. VITAMIN D3 [Concomitant]
     Active Substance: CHOLECALCIFEROL
  12. VITAMIN B12 [Concomitant]
     Active Substance: CYANOCOBALAMIN
  13. L?CITRULINE [Concomitant]

REACTIONS (4)
  - Injection site pain [None]
  - Injection site pruritus [None]
  - Insurance issue [None]
  - Abdominal pain [None]
